FAERS Safety Report 16179954 (Version 1)
Quarter: 2019Q2

REPORT INFORMATION
  Report Type: Spontaneous
  Country: PL (occurrence: PL)
  Receive Date: 20190410
  Receipt Date: 20190410
  Transmission Date: 20190711
  Serious: Yes (Other)
  Sender: FDA-Public Use
  Company Number: PL-ASTRAZENECA-2019SE51220

PATIENT
  Age: 67 Year
  Sex: Female

DRUGS (8)
  1. TICAGRELOR. [Suspect]
     Active Substance: TICAGRELOR
     Dosage: UNK
     Route: 048
  2. HYDROXYZINE [Suspect]
     Active Substance: HYDROXYZINE HYDROCHLORIDE
     Route: 065
  3. MELATONIN [Suspect]
     Active Substance: MELATONIN
     Route: 065
  4. EPLERENONE. [Concomitant]
     Active Substance: EPLERENONE
  5. ACETYLSALICYLIC ACID [Suspect]
     Active Substance: ASPIRIN
     Dosage: UNK
     Route: 065
  6. PERAZINE [Suspect]
     Active Substance: PERAZINE
     Route: 065
  7. ZOLPIDEM [Suspect]
     Active Substance: ZOLPIDEM\ZOLPIDEM TARTRATE
     Route: 065
  8. ZOFENOPRIL [Concomitant]
     Active Substance: ZOFENOPRIL

REACTIONS (6)
  - Memory impairment [Unknown]
  - Angina pectoris [Unknown]
  - Disturbance in attention [Unknown]
  - Vascular stent thrombosis [Unknown]
  - Hypoaesthesia [Unknown]
  - Sleep disorder [Unknown]
